FAERS Safety Report 14172640 (Version 4)
Quarter: 2018Q2

REPORT INFORMATION
  Report Type: Report from Study
  Country: US (occurrence: US)
  Receive Date: 20171109
  Receipt Date: 20180626
  Transmission Date: 20180711
  Serious: No
  Sender: FDA-Public Use
  Company Number: PHEH2017US036257

PATIENT
  Sex: Male

DRUGS (2)
  1. GLEEVEC [Suspect]
     Active Substance: IMATINIB MESYLATE
     Dosage: 100 MG, QD (1 TABLET)
     Route: 065
  2. GLEEVEC [Suspect]
     Active Substance: IMATINIB MESYLATE
     Indication: GASTRIC NEOPLASM
     Dosage: 100 MG, QD (4 TABLETS)
     Route: 065

REACTIONS (8)
  - Pain in extremity [Unknown]
  - Frequent bowel movements [Unknown]
  - Product use in unapproved indication [None]
  - Rash [Unknown]
  - Scar [Unknown]
  - Hypoaesthesia [Unknown]
  - Blister [Unknown]
  - Weight decreased [Unknown]
